FAERS Safety Report 6314472-9 (Version None)
Quarter: 2009Q3

REPORT INFORMATION
  Report Type: 
  Country: None (occurrence: None)
  Receive Date: 20090819
  Receipt Date: 20090813
  Transmission Date: 20100115
  Serious: Yes (Hospitalization)
  Sender: FDA-Public Use
  Company Number: FR-BRISTOL-MYERS SQUIBB COMPANY-14743983

PATIENT
  Age: 57 Year
  Sex: Female

DRUGS (12)
  1. GLUCOPHAGE [Suspect]
     Dosage: FORM- COATED TAB
     Route: 048
  2. CARDENSIEL [Suspect]
     Dosage: FORM-COATED TAB. STRENGTH-5MG
     Route: 048
  3. KARDEGIC [Suspect]
     Dosage: STRENGTH-75MG,FORM-POWDER FOR ORAL SOLUTION
     Route: 048
  4. PLAVIX [Suspect]
     Dosage: STRENGTH-75MG.FORM-COATED TAB
     Route: 048
  5. TAHOR [Suspect]
     Indication: DYSLIPIDAEMIA
     Dosage: STRENGTH-10MG.FORM-COATED TAB
     Route: 048
  6. NEXIUM [Suspect]
     Dosage: STRENGTH-20MG.FORM-GASTRO RESISTANT TAB
     Route: 048
  7. LASILIX FAIBLE [Suspect]
     Dosage: STRENGTH-20MG.FORM-TAB
     Route: 048
  8. DAONIL [Suspect]
     Dosage: STRENGTH-5MG.FORM-TAB
     Route: 048
  9. DEROXAT [Suspect]
     Dosage: STRENGTH-20MG.FORM-COATED TAB
     Route: 048
  10. COVERSYL [Suspect]
  11. LEXOMIL [Suspect]
     Dosage: STRENGTH-12MG.FORM-TAB
     Route: 048
  12. NICOPATCH [Suspect]
     Route: 062

REACTIONS (2)
  - PSYCHOMOTOR SKILLS IMPAIRED [None]
  - TOXIC SKIN ERUPTION [None]
